FAERS Safety Report 5893052-3 (Version None)
Quarter: 2008Q3

REPORT INFORMATION
  Report Type: 
  Country: None (occurrence: None)
  Receive Date: 20080923
  Receipt Date: 20080605
  Transmission Date: 20090109
  Serious: No
  Sender: FDA-Public Use
  Company Number: US-ASTRAZENECA-2006UW24425

PATIENT
  Age: 16758 Day
  Sex: Female
  Weight: 76.4 kg

DRUGS (8)
  1. SEROQUEL [Suspect]
     Indication: DEPRESSION
     Route: 048
     Dates: start: 20000101, end: 20010101
  2. SEROQUEL [Suspect]
     Indication: STRESS
     Route: 048
     Dates: start: 20000101, end: 20010101
  3. SEROQUEL [Suspect]
     Route: 048
     Dates: start: 20000101, end: 20010101
  4. SEROQUEL [Suspect]
     Route: 048
     Dates: start: 20021101, end: 20021201
  5. SEROQUEL [Suspect]
     Route: 048
     Dates: start: 20021101, end: 20021201
  6. SEROQUEL [Suspect]
     Route: 048
     Dates: start: 20021101, end: 20021201
  7. STARLIX [Concomitant]
  8. ZYPREXA [Concomitant]

REACTIONS (3)
  - CHRONIC OBSTRUCTIVE PULMONARY DISEASE [None]
  - DIABETES MELLITUS [None]
  - ILL-DEFINED DISORDER [None]
